FAERS Safety Report 6173788-X (Version None)
Quarter: 2009Q2

REPORT INFORMATION
  Report Type: 
  Country: None (occurrence: None)
  Receive Date: 20090430
  Receipt Date: 20090422
  Transmission Date: 20091009
  Serious: Yes (Other)
  Sender: FDA-Public Use
  Company Number: PHHY2009BR15502

PATIENT
  Sex: Female
  Weight: 56 kg

DRUGS (3)
  1. DIOVAN HCT [Suspect]
     Dosage: UNK
     Dates: start: 20050101
  2. OMEPRAZOLE [Concomitant]
     Indication: GASTRITIS
     Dosage: 20 MG, ONE CAPSULE IN THE MORNING AND AT NIGHT
     Route: 048
  3. PURAN T4 [Concomitant]
     Indication: NODULE
     Dosage: 25 MCG,ONE TABLET AND A HALF DAILY
     Route: 048

REACTIONS (4)
  - BLOOD SODIUM DECREASED [None]
  - GASTRITIS [None]
  - REFLUX GASTRITIS [None]
  - THYROID OPERATION [None]
